FAERS Safety Report 18354360 (Version 1)
Quarter: 2020Q4

REPORT INFORMATION
  Report Type: Spontaneous
  Country: US (occurrence: US)
  Receive Date: 20201006
  Receipt Date: 20201006
  Transmission Date: 20210114
  Serious: No
  Sender: FDA-Public Use
  Company Number: None

PATIENT
  Age: 60 Year
  Sex: Female
  Weight: 74.39 kg

DRUGS (4)
  1. COPAXONE [Suspect]
     Active Substance: GLATIRAMER ACETATE
     Indication: MULTIPLE SCLEROSIS
     Dates: start: 20080407, end: 20100107
  2. DIMETHYL FUMARATE 240MG (TRIED AND FAILED) [Suspect]
     Active Substance: DIMETHYL FUMARATE
     Indication: MULTIPLE SCLEROSIS
     Dates: start: 20140720, end: 20140823
  3. REBIF [Suspect]
     Active Substance: INTERFERON BETA-1A
  4. AVONEX [Suspect]
     Active Substance: INTERFERON BETA-1A

REACTIONS (2)
  - Product substitution issue [None]
  - Treatment failure [None]

NARRATIVE: CASE EVENT DATE: 20201005
